FAERS Safety Report 7530124-1 (Version None)
Quarter: 2011Q2

REPORT INFORMATION
  Report Type: 
  Country: None (occurrence: None)
  Receive Date: 20110607
  Receipt Date: 20110307
  Transmission Date: 20111010
  Serious: Yes (Hospitalization, Other)
  Sender: FDA-Public Use
  Company Number: US-BAYER-201032377NA

PATIENT
  Age: 26 Year
  Sex: Female
  Weight: 113.4 kg

DRUGS (3)
  1. YASMIN [Suspect]
     Indication: CONTRACEPTION
     Dosage: UNK
     Route: 048
     Dates: start: 20041201, end: 20080101
  2. VICODIN [Concomitant]
     Indication: PAIN
  3. PEPCID [Concomitant]

REACTIONS (6)
  - INJURY [None]
  - CHOLECYSTITIS CHRONIC [None]
  - PAIN [None]
  - CHOLELITHIASIS [None]
  - GALLBLADDER INJURY [None]
  - ABDOMINAL PAIN UPPER [None]
